FAERS Safety Report 23819312 (Version 1)
Quarter: 2024Q2

REPORT INFORMATION
  Report Type: Spontaneous
  Country: US (occurrence: US)
  Receive Date: 20240506
  Receipt Date: 20240506
  Transmission Date: 20240715
  Serious: No
  Sender: FDA-Public Use
  Company Number: US-SA-SAC20240426001046

PATIENT
  Age: 67 Year
  Sex: Female

DRUGS (16)
  1. DUPIXENT [Suspect]
     Active Substance: DUPILUMAB
     Indication: Asthma
     Dosage: 300 MG, QOW
     Route: 058
     Dates: start: 20240125
  2. ARAVA [Concomitant]
     Active Substance: LEFLUNOMIDE
  3. BIOTIN [Concomitant]
     Active Substance: BIOTIN
  4. BUSPIRONE [Concomitant]
     Active Substance: BUSPIRONE HYDROCHLORIDE
  5. CREON [Concomitant]
     Active Substance: PANCRELIPASE AMYLASE\PANCRELIPASE LIPASE\PANCRELIPASE PROTEASE
  6. CYMBALTA [Concomitant]
     Active Substance: DULOXETINE HYDROCHLORIDE
  7. HUMIRA [Concomitant]
     Active Substance: ADALIMUMAB
  8. IRON [Concomitant]
     Active Substance: IRON
  9. MAGNESIUM [Concomitant]
     Active Substance: MAGNESIUM
  10. VITAMINS NOS [Concomitant]
     Active Substance: VITAMINS
  11. ROPINIROLE [Concomitant]
     Active Substance: ROPINIROLE
  12. SINGULAIR [Concomitant]
     Active Substance: MONTELUKAST SODIUM
  13. VICTOZA [Concomitant]
     Active Substance: LIRAGLUTIDE
  14. VITAMIN D3 [Concomitant]
     Active Substance: CHOLECALCIFEROL
  15. ZINC [Concomitant]
     Active Substance: PYRITHIONE ZINC\ZINC\ZINC CHLORIDE
  16. ZYRTEC [Concomitant]
     Active Substance: CETIRIZINE HYDROCHLORIDE

REACTIONS (4)
  - Asthma [Unknown]
  - Impaired quality of life [Unknown]
  - Product use in unapproved indication [Unknown]
  - Drug ineffective [Unknown]

NARRATIVE: CASE EVENT DATE: 20240101
